FAERS Safety Report 9496842 (Version 1)
Quarter: 2013Q3

REPORT INFORMATION
  Report Type: Spontaneous
  Country: BE (occurrence: BE)
  Receive Date: 20130904
  Receipt Date: 20130904
  Transmission Date: 20140515
  Serious: Yes (Disabling)
  Sender: FDA-Public Use
  Company Number: BE-PFIZER INC-2013250412

PATIENT
  Age: 73 Year
  Sex: Male
  Weight: 70 kg

DRUGS (3)
  1. TOTALIP [Suspect]
     Dosage: 10 MG, 1X/DAY
     Route: 048
     Dates: start: 201304, end: 20130624
  2. LISINOPRIL [Concomitant]
     Dosage: 20 MG, UNK
  3. NOBITEN [Concomitant]
     Dosage: 5 MG, UNK

REACTIONS (1)
  - Eczema [Recovering/Resolving]
